FAERS Safety Report 7538327-7 (Version None)
Quarter: 2011Q2

REPORT INFORMATION
  Report Type: 
  Country: None (occurrence: None)
  Receive Date: 20110609
  Receipt Date: 20070316
  Transmission Date: 20111010
  Serious: Yes (Hospitalization)
  Sender: FDA-Public Use
  Company Number: PHEH2007US02409

PATIENT
  Sex: Female
  Weight: 68.934 kg

DRUGS (2)
  1. EXJADE [Suspect]
     Indication: SERUM FERRITIN INCREASED
     Dosage: 1250 MG, QD
     Route: 048
     Dates: start: 20070118, end: 20070201
  2. REVLIMID [Suspect]
     Dosage: 5 MG, QD
     Route: 048
     Dates: start: 20070101, end: 20070201

REACTIONS (4)
  - PNEUMONIA [None]
  - BACTERIAL INFECTION [None]
  - LUNG INFECTION [None]
  - RASH [None]
